FAERS Safety Report 8168542-3 (Version None)
Quarter: 2012Q1

REPORT INFORMATION
  Report Type: 
  Country: None (occurrence: None)
  Receive Date: 20120227
  Receipt Date: 20120227
  Transmission Date: 20120608
  Serious: Yes (Hospitalization)
  Sender: FDA-Public Use
  Company Number: None

PATIENT
  Sex: Female
  Weight: 87.996 kg

DRUGS (1)
  1. MAGNEVIST [Suspect]
     Indication: NUCLEAR MAGNETIC RESONANCE IMAGING
     Dates: start: 20120126, end: 20120126

REACTIONS (11)
  - INFUSION SITE PARAESTHESIA [None]
  - BLOOD PRESSURE INCREASED [None]
  - MIGRAINE [None]
  - SENSATION OF HEAVINESS [None]
  - FEELING ABNORMAL [None]
  - DYSPNOEA [None]
  - CHEST PAIN [None]
  - NAUSEA [None]
  - ERYTHEMA [None]
  - SWELLING FACE [None]
  - CONTRAST MEDIA ALLERGY [None]
